FAERS Safety Report 7364154-X (Version None)
Quarter: 2011Q1

REPORT INFORMATION
  Report Type: 
  Country: None (occurrence: None)
  Receive Date: 20110321
  Receipt Date: 20101007
  Transmission Date: 20110831
  Serious: Yes (Hospitalization, Other)
  Sender: FDA-Public Use
  Company Number: US-BAYER-201018585NA

PATIENT
  Sex: Female
  Weight: 65.909 kg

DRUGS (15)
  1. YAZ [Suspect]
     Route: 048
     Dates: start: 20070820, end: 20080327
  2. BLOOD PRESSURE MEDICATION (NOS) [Concomitant]
     Route: 065
  3. UNKNOWN DRUG [Concomitant]
     Indication: MIGRAINE
  4. PROMETHAZINE [Concomitant]
     Dosage: UNK
     Route: 048
     Dates: start: 20080401
  5. ACETAMINOPHEN AND HYDROCODONE BITARTRATE [Concomitant]
     Dosage: UNK
     Dates: start: 20071101
  6. PROPOXYPHENE NAPSYLATE W/ ACETAMINOPHEN [Concomitant]
     Dosage: UNK
     Route: 048
     Dates: start: 20071101
  7. FLOMAX [Concomitant]
     Dosage: UNK
     Route: 048
     Dates: start: 20071101
  8. NSAID'S [Concomitant]
     Route: 065
  9. UNKNOWN DRUG [Concomitant]
     Indication: HEADACHE
     Route: 065
  10. MARIJUANA [Concomitant]
     Route: 065
  11. ATENOLOL [Concomitant]
     Dosage: UNK
     Route: 048
     Dates: start: 20080401
  12. DOXYCYCLINE HYCLATE [Concomitant]
     Dosage: UNK
     Route: 048
     Dates: start: 20080401
  13. ACETAMINOPHEN AND HYDROCODONE BITARTRATE [Concomitant]
     Dosage: UNK
     Dates: start: 20080401
  14. YASMIN [Suspect]
     Route: 048
  15. ACETAMINOPHEN AND HYDROCODONE BITARTRATE [Concomitant]
     Dosage: UNK
     Route: 048
     Dates: start: 20070701

REACTIONS (10)
  - DYSPEPSIA [None]
  - NEPHROLITHIASIS [None]
  - VOMITING [None]
  - EMOTIONAL DISTRESS [None]
  - CHOLELITHIASIS [None]
  - ABDOMINAL PAIN UPPER [None]
  - PAIN [None]
  - BACK PAIN [None]
  - NAUSEA [None]
  - HYDRONEPHROSIS [None]
